FAERS Safety Report 7830640-9 (Version None)
Quarter: 2011Q4

REPORT INFORMATION
  Report Type: 
  Country: None (occurrence: None)
  Receive Date: 20111021
  Receipt Date: 20111018
  Transmission Date: 20120403
  Serious: Yes (Hospitalization, Other)
  Sender: FDA-Public Use
  Company Number: US-ABBOTT-11P-163-0858889-00

PATIENT
  Sex: Female
  Weight: 44.946 kg

DRUGS (11)
  1. ZEGERID [Concomitant]
     Indication: GASTRITIS
     Dosage: 40/1100 MG
     Route: 048
  2. CALCIUM CARBONATE [Concomitant]
     Indication: PRODUCT USED FOR UNKNOWN INDICATION
  3. HUMIRA [Suspect]
     Indication: CROHN'S DISEASE
     Route: 058
     Dates: start: 20100501
  4. EXCEDRIN TENSION HEADACHE [Concomitant]
     Indication: HEADACHE
     Dosage: DAILY AS NEEDED
     Route: 048
  5. PENICILLIN [Suspect]
     Indication: TOOTH EXTRACTION
     Dates: start: 20110701
  6. MORPHINE [Concomitant]
     Indication: PAIN
     Dosage: 30MG IN THE MORNING, 15MG AT NIGHT
  7. OMEPRAZOLE [Concomitant]
     Indication: PRODUCT USED FOR UNKNOWN INDICATION
  8. IMODIUM [Concomitant]
     Indication: PRODUCT USED FOR UNKNOWN INDICATION
  9. TRAZODONE HYDROCHLORIDE [Concomitant]
     Indication: PRODUCT USED FOR UNKNOWN INDICATION
     Dosage: AT BEDTIME
  10. WELCHOL [Concomitant]
     Indication: SUPPLEMENTATION THERAPY
     Dosage: 1-2 TABLETS DAILY
     Dates: start: 20110801
  11. MULTI-VITAMIN [Concomitant]
     Indication: PRODUCT USED FOR UNKNOWN INDICATION

REACTIONS (30)
  - ERYTHEMA [None]
  - DUODENAL ULCER [None]
  - OROPHARYNGEAL PAIN [None]
  - MIGRAINE [None]
  - HEPATOMEGALY [None]
  - FEELING HOT [None]
  - ARTHRALGIA [None]
  - PANCREATIC DUCT DILATATION [None]
  - DIARRHOEA [None]
  - BILE DUCT STENOSIS [None]
  - PAIN IN EXTREMITY [None]
  - WEIGHT DECREASED [None]
  - JOINT SWELLING [None]
  - TOOTH EXTRACTION [None]
  - BACK PAIN [None]
  - HEADACHE [None]
  - BILE DUCT OBSTRUCTION [None]
  - NAUSEA [None]
  - ABDOMINAL PAIN UPPER [None]
  - GASTROOESOPHAGEAL REFLUX DISEASE [None]
  - CHOLECYSTECTOMY [None]
  - SENSORY DISTURBANCE [None]
  - JOINT STIFFNESS [None]
  - SKIN HYPERTROPHY [None]
  - TOBACCO USER [None]
  - BILIARY DILATATION [None]
  - FATIGUE [None]
  - ABDOMINAL DISTENSION [None]
  - DYSPEPSIA [None]
  - SKIN LESION [None]
